FAERS Safety Report 16318658 (Version 1)
Quarter: 2019Q2

REPORT INFORMATION
  Report Type: Spontaneous
  Country: DE (occurrence: DE)
  Receive Date: 20190516
  Receipt Date: 20190516
  Transmission Date: 20190711
  Serious: Yes (Other)
  Sender: FDA-Public Use
  Company Number: DE-LUPIN PHARMACEUTICALS INC.-2019-02955

PATIENT
  Age: 50 Year
  Sex: Female

DRUGS (2)
  1. GABAPENTIN. [Suspect]
     Active Substance: GABAPENTIN
     Indication: PAIN
     Dosage: 600 MILLIGRAM, TID
     Route: 048
     Dates: start: 20110520, end: 20110625
  2. DULOXETINE. [Suspect]
     Active Substance: DULOXETINE
     Indication: PAIN
     Dosage: 60 MILLIGRAM, QD
     Route: 048
     Dates: start: 20110520, end: 20110625

REACTIONS (11)
  - Anxiety [Recovering/Resolving]
  - Muscular weakness [Recovered/Resolved]
  - Conjunctivitis [Recovered/Resolved]
  - Dysgeusia [Recovered/Resolved]
  - Hypertensive crisis [Recovered/Resolved]
  - Hot flush [Recovered/Resolved]
  - Rash [Recovered/Resolved]
  - Blood pressure increased [Recovered/Resolved]
  - Blood chromogranin A increased [Recovered/Resolved]
  - Generalised erythema [Recovered/Resolved]
  - Drug interaction [Unknown]
